FAERS Safety Report 6986236-4 (Version None)
Quarter: 2010Q3

REPORT INFORMATION
  Report Type: 
  Country: None (occurrence: None)
  Receive Date: 20100915
  Receipt Date: 20090616
  Transmission Date: 20110219
  Serious: No
  Sender: FDA-Public Use
  Company Number: US-WYE-H09776409

PATIENT
  Sex: Female
  Weight: 72.19 kg

DRUGS (1)
  1. PRISTIQ [Suspect]
     Indication: DEPRESSION
     Dosage: TOOK 1/4 OF TABLET DAILY, AS RECOMMENDED BY HER HCP
     Route: 048
     Dates: start: 20090505, end: 20090515

REACTIONS (3)
  - DECREASED APPETITE [None]
  - FATIGUE [None]
  - HEADACHE [None]
